FAERS Safety Report 24794530 (Version 1)
Quarter: 2024Q4

REPORT INFORMATION
  Report Type: Spontaneous
  Country: JP (occurrence: JP)
  Receive Date: 20241231
  Receipt Date: 20241231
  Transmission Date: 20250114
  Serious: Yes (Other)
  Sender: ALEXION PHARMACEUTICALS
  Company Number: JP-ASTRAZENECA-240146317_013120_P_1

PATIENT
  Age: 37 Year
  Weight: 90 kg

DRUGS (24)
  1. DURVALUMAB [Suspect]
     Active Substance: DURVALUMAB
     Indication: Non-small cell lung cancer
     Dosage: 900 MILLIGRAM, Q2W
  2. DURVALUMAB [Suspect]
     Active Substance: DURVALUMAB
     Dosage: 900 MILLIGRAM, Q2W
     Route: 041
  3. DURVALUMAB [Suspect]
     Active Substance: DURVALUMAB
     Dosage: 900 MILLIGRAM, Q2W
  4. DURVALUMAB [Suspect]
     Active Substance: DURVALUMAB
     Dosage: 900 MILLIGRAM, Q2W
     Route: 041
  5. Glycyron [Concomitant]
     Dosage: DOSE UNKNOWN
     Route: 048
  6. Glycyron [Concomitant]
     Dosage: DOSE UNKNOWN
  7. URSODIOL [Concomitant]
     Active Substance: URSODIOL
     Dosage: DOSE UNKNOWN
     Route: 048
  8. URSODIOL [Concomitant]
     Active Substance: URSODIOL
     Dosage: DOSE UNKNOWN
  9. Bilanoa od [Concomitant]
     Dosage: DOSE UNKNOWN
     Route: 048
  10. Bilanoa od [Concomitant]
     Dosage: DOSE UNKNOWN
  11. LASIX [Concomitant]
     Active Substance: FUROSEMIDE
     Dosage: DOSE UNKNOWN
     Route: 048
  12. LASIX [Concomitant]
     Active Substance: FUROSEMIDE
     Dosage: DOSE UNKNOWN
  13. KETOCONAZOLE [Concomitant]
     Active Substance: KETOCONAZOLE
     Dosage: DOSE UNKNOWN
     Route: 062
  14. KETOCONAZOLE [Concomitant]
     Active Substance: KETOCONAZOLE
     Dosage: DOSE UNKNOWN
  15. CLINDAMYCIN PHOSPHATE [Concomitant]
     Active Substance: CLINDAMYCIN PHOSPHATE
     Dosage: DOSE UNKNOWN
     Route: 062
  16. CLINDAMYCIN PHOSPHATE [Concomitant]
     Active Substance: CLINDAMYCIN PHOSPHATE
     Dosage: DOSE UNKNOWN
  17. Myser [Concomitant]
     Dosage: DOSE UNKNOWN
     Route: 062
  18. Myser [Concomitant]
     Dosage: DOSE UNKNOWN
  19. Rinderon [Concomitant]
     Dosage: DOSE UNKNOWN
     Route: 062
  20. Rinderon [Concomitant]
     Dosage: DOSE UNKNOWN
  21. HEPARINOID [Concomitant]
     Dosage: DOSE UNKNOWN
     Route: 065
  22. HEPARINOID [Concomitant]
     Dosage: DOSE UNKNOWN
     Route: 065
  23. NADIFLOXACIN [Concomitant]
     Active Substance: NADIFLOXACIN
     Dosage: DOSE UNKNOWN
     Route: 062
  24. NADIFLOXACIN [Concomitant]
     Active Substance: NADIFLOXACIN
     Dosage: DOSE UNKNOWN

REACTIONS (5)
  - Autoimmune pancreatitis [Recovering/Resolving]
  - Gastrooesophageal reflux disease [Unknown]
  - Hernia [Unknown]
  - Radiation pneumonitis [Unknown]
  - Diverticulum intestinal [Recovering/Resolving]
